FAERS Safety Report 8773619 (Version 5)
Quarter: 2013Q2

REPORT INFORMATION
  Report Type: Spontaneous
  Country: BR (occurrence: BR)
  Receive Date: 20120907
  Receipt Date: 20130408
  Transmission Date: 20140414
  Serious: Yes (Other)
  Sender: FDA-Public Use
  Company Number: PHHY2012BR077590

PATIENT
  Sex: Male

DRUGS (10)
  1. SANDOSTATIN LAR [Suspect]
     Indication: ACROMEGALY
     Dosage: 20 MG, UNK
     Route: 030
  2. SANDOSTATIN LAR [Suspect]
     Dosage: 20 MG, EVERY 28 DAYS
     Route: 030
  3. PURAN T4 [Concomitant]
     Dosage: 125 MCG
  4. CORTICORTEN [Concomitant]
  5. CORDIL//DILTIAZEM HYDROCHLORIDE [Concomitant]
     Dosage: 60 MG, UNK
  6. SPIRONOLACTONE [Concomitant]
     Dosage: 50 MG, UNK
  7. FUROSEMIDE [Concomitant]
     Dosage: 40 MG, UNK
  8. PLAVIX [Concomitant]
     Dosage: 3.125 UKN, UNK
  9. COUMADIN [Concomitant]
     Dosage: 3.75 SPLIT TABLETS
  10. CARVEDILOL [Concomitant]
     Dosage: 125 MG, UNK
     Route: 048

REACTIONS (7)
  - Mediastinal disorder [Unknown]
  - Coagulopathy [Unknown]
  - Vascular rupture [Unknown]
  - Haemorrhage [Unknown]
  - Neoplasm [Unknown]
  - Musculoskeletal pain [Not Recovered/Not Resolved]
  - Local swelling [Unknown]
